FAERS Safety Report 14376570 (Version 1)
Quarter: 2018Q1

REPORT INFORMATION
  Report Type: Spontaneous
  Country: US (occurrence: US)
  Receive Date: 20180111
  Receipt Date: 20180111
  Transmission Date: 20180509
  Serious: No
  Sender: FDA-Public Use
  Company Number: US-DRREDDYS-USA/USA/17/0094209

PATIENT
  Age: 37 Year
  Sex: Male
  Weight: 72.7 kg

DRUGS (4)
  1. COENZYME Q10 [Concomitant]
     Active Substance: UBIDECARENONE
     Indication: PRODUCT USED FOR UNKNOWN INDICATION
     Route: 065
  2. NICOTINE. [Suspect]
     Active Substance: NICOTINE
     Indication: PRODUCT USED FOR UNKNOWN INDICATION
     Route: 062
  3. CIMETIDINE [Concomitant]
     Active Substance: CIMETIDINE
     Indication: PIGMENTATION DISORDER
     Route: 065
  4. CENTRUM [Concomitant]
     Active Substance: VITAMINS
     Indication: SUPPLEMENTATION THERAPY
     Route: 065

REACTIONS (8)
  - Treatment noncompliance [Unknown]
  - Application site erythema [Not Recovered/Not Resolved]
  - Drug dose omission [Unknown]
  - Nicotine dependence [Unknown]
  - Product adhesion issue [Unknown]
  - Dry skin [Unknown]
  - Application site pruritus [Not Recovered/Not Resolved]
  - Wrong technique in product usage process [Unknown]
